FAERS Safety Report 7925012 (Version 5)
Quarter: 2012Q4

REPORT INFORMATION
  Report Type: Report from Study
  Country: JP (occurrence: JP)
  Receive Date: 20110502
  Receipt Date: 20120917
  Transmission Date: 20130627
  Serious: Yes (Hospitalization)
  Sender: FDA-Public Use
  Company Number: JP-GENZYME-POMP-1001521

PATIENT
  Age: 2 Year
  Sex: Male
  Weight: 8 kg

DRUGS (9)
  1. MYOZYME [Suspect]
     Indication: GLYCOGEN STORAGE DISEASE TYPE II
     Dosage: 25 mg/kg, UNK
     Route: 042
     Dates: start: 20091015
  2. MYOZYME [Suspect]
     Dosage: 150 mg, UNK
     Route: 042
     Dates: start: 20090807, end: 20091002
  3. HYDROXYZINE [Concomitant]
     Indication: PREMEDICATION
     Dosage: 5 mg, q2w
     Dates: start: 20091029
  4. HYDROCORTISONE SODIUM SUCCINATE [Concomitant]
     Indication: PREMEDICATION
     Dosage: 60 mg, q2w
     Dates: start: 20091029
  5. BROMHEXINE HYDROCHLORIDE [Concomitant]
     Indication: GLYCOGEN STORAGE DISEASE TYPE II
     Dosage: 1 ml, UNK
     Dates: start: 20091003
  6. SALBUTAMOL [Concomitant]
     Indication: GLYCOGEN STORAGE DISEASE TYPE II
     Dosage: .1 ml, UNK
     Dates: start: 20091003
  7. PRANLUKAST [Concomitant]
     Indication: WHEEZING
     Dosage: 30 mg, bid
     Dates: start: 20100310
  8. FERRIC PYROPHOSPHATE [Concomitant]
     Indication: ANAEMIA
     Dosage: 0.67 ml, tid
  9. BIFIDOBACTERIUM BIFIDUM [Concomitant]
     Indication: DIARRHOEA
     Dosage: .33 g, tid
     Dates: start: 20101109

REACTIONS (1)
  - Anaphylactoid reaction [Recovered/Resolved]
